FAERS Safety Report 8155638 (Version 4)
Quarter: 2015Q2

REPORT INFORMATION
  Report Type: Report from Study
  Country: NO (occurrence: NO)
  Receive Date: 20110926
  Receipt Date: 20150605
  Transmission Date: 20150821
  Serious: Yes (Hospitalization)
  Sender: FDA-Public Use
  Company Number: PHHY2010NO36746

PATIENT
  Age: 4 Year
  Sex: Male
  Weight: 19 kg

DRUGS (7)
  1. ILARIS [Suspect]
     Active Substance: CANAKINUMAB
     Indication: CRYOPYRIN ASSOCIATED PERIODIC SYNDROME
  2. PNEUMOVAX 23 [Suspect]
     Active Substance: PNEUMOCOCCAL VACCINE, POLYVALENT 23
     Indication: PRODUCT USED FOR UNKNOWN INDICATION
     Route: 065
     Dates: start: 20100525
  3. DICLOCIL [Concomitant]
     Active Substance: DICLOXACILLIN SODIUM
     Indication: ERYSIPELAS
     Route: 065
     Dates: start: 20100530
  4. PENICILLIN [Concomitant]
     Active Substance: PENICILLIN
     Indication: DEPENDENT RUBOR
  5. ILARIS [Suspect]
     Active Substance: CANAKINUMAB
     Indication: CHRONIC INFANTILE NEUROLOGICAL CUTANEOUS AND ARTICULAR SYNDROME
     Dosage: 37.5 MG, EVERY 8 WEEKS
     Route: 058
     Dates: start: 20100215
  6. PENICILLIN [Concomitant]
     Active Substance: PENICILLIN
     Indication: SWELLING
     Route: 065
     Dates: start: 20100527
  7. PENICILLIN [Concomitant]
     Active Substance: PENICILLIN
     Indication: PYREXIA

REACTIONS (7)
  - Intracranial pressure increased [Unknown]
  - Papilloedema [Unknown]
  - Pyrexia [Recovered/Resolved]
  - Pain in extremity [Recovered/Resolved]
  - Injection site swelling [Recovered/Resolved]
  - Erysipelas [Recovered/Resolved]
  - Injection site erythema [Recovered/Resolved]

NARRATIVE: CASE EVENT DATE: 20100526
